FAERS Safety Report 8508831-3 (Version None)
Quarter: 2012Q3

REPORT INFORMATION
  Report Type: 
  Country: None (occurrence: None)
  Receive Date: 20120713
  Receipt Date: 20120711
  Transmission Date: 20120928
  Serious: Yes (Other)
  Sender: FDA-Public Use
  Company Number: DE-PFIZER INC-2012166101

PATIENT
  Age: 56 Year
  Sex: Male

DRUGS (4)
  1. BISOPROLOL FUMARATE [Suspect]
  2. INSPRA [Suspect]
  3. SIMVASTATIN [Suspect]
  4. IVABRADINE [Suspect]

REACTIONS (1)
  - LONG QT SYNDROME [None]
